FAERS Safety Report 15748183 (Version 2)
Quarter: 2019Q1

REPORT INFORMATION
  Report Type: Report from Study
  Country: US (occurrence: US)
  Receive Date: 20181221
  Receipt Date: 20190225
  Transmission Date: 20190417
  Serious: Yes (Other)
  Sender: FDA-Public Use
  Company Number: US-BIOGEN-2018BI00673532

PATIENT
  Age: 58 Year
  Sex: Female

DRUGS (1)
  1. TYSABRI [Suspect]
     Active Substance: NATALIZUMAB
     Indication: MULTIPLE SCLEROSIS
     Dosage: INFUSED OVER 1 HOUR
     Route: 042

REACTIONS (3)
  - Pulmonary mass [Not Recovered/Not Resolved]
  - Cryptococcal fungaemia [Not Recovered/Not Resolved]
  - Pneumonia cryptococcal [Not Recovered/Not Resolved]

NARRATIVE: CASE EVENT DATE: 201805
